FAERS Safety Report 10046853 (Version 1)
Quarter: 2014Q1

REPORT INFORMATION
  Report Type: Spontaneous
  Country: US (occurrence: US)
  Receive Date: 20140331
  Receipt Date: 20140331
  Transmission Date: 20141002
  Serious: Yes (Hospitalization)
  Sender: FDA-Public Use
  Company Number: US-ROCHE-1368867

PATIENT
  Age: 83 Year
  Sex: Female

DRUGS (14)
  1. VEMURAFENIB [Suspect]
     Indication: METASTATIC MALIGNANT MELANOMA
     Route: 048
  2. VEMURAFENIB [Suspect]
     Route: 048
  3. VEMURAFENIB [Suspect]
     Dosage: 1 WEEK ON 1 WEEK OFF
     Route: 048
  4. VEMURAFENIB [Suspect]
     Dosage: WITHOUT INTERRUPTION
     Route: 048
  5. ALPRAZOLAM [Concomitant]
     Route: 065
  6. ASPIRIN [Concomitant]
     Route: 065
  7. CITALOPRAM [Concomitant]
     Route: 065
  8. DOCUSATE [Concomitant]
     Route: 065
  9. PRAVASTATIN [Concomitant]
     Route: 065
  10. RABEPRAZOLE [Concomitant]
     Route: 065
  11. RALOXIFENE [Concomitant]
     Route: 065
  12. TRAMADOL [Concomitant]
     Route: 065
  13. TRANDOLAPRIL/VERAPAMIL HYDROCHLORIDE [Concomitant]
  14. TRAZODONE [Concomitant]
     Route: 065

REACTIONS (1)
  - Acute febrile neutrophilic dermatosis [Recovered/Resolved]
